FAERS Safety Report 25249741 (Version 2)
Quarter: 2025Q2

REPORT INFORMATION
  Report Type: Report from Study
  Country: CA (occurrence: CA)
  Receive Date: 20250429
  Receipt Date: 20250626
  Transmission Date: 20250716
  Serious: Yes (Hospitalization)
  Sender: TAKEDA
  Company Number: CA-TAKEDA-2019TUS068067

PATIENT
  Age: 44 Year
  Sex: Female

DRUGS (20)
  1. VEDOLIZUMAB [Suspect]
     Active Substance: VEDOLIZUMAB
     Indication: Colitis ulcerative
  2. VEDOLIZUMAB [Suspect]
     Active Substance: VEDOLIZUMAB
  3. VEDOLIZUMAB [Suspect]
     Active Substance: VEDOLIZUMAB
  4. VEDOLIZUMAB [Suspect]
     Active Substance: VEDOLIZUMAB
  5. MESALAMINE [Concomitant]
     Active Substance: MESALAMINE
  6. CYCLOBENZAPRINE [Concomitant]
     Active Substance: CYCLOBENZAPRINE
  7. LORAZEPAM [Concomitant]
     Active Substance: LORAZEPAM
  8. VITAMIN B12 [Concomitant]
     Active Substance: CYANOCOBALAMIN
  9. VENTOLIN [Concomitant]
     Active Substance: ALBUTEROL SULFATE
  10. TERCONAZOLE [Concomitant]
     Active Substance: TERCONAZOLE
  11. ZOPICLONE [Concomitant]
     Active Substance: ZOPICLONE
  12. VENLAFAXINE [Concomitant]
     Active Substance: VENLAFAXINE HYDROCHLORIDE
  13. RAMIPRIL [Concomitant]
     Active Substance: RAMIPRIL
  14. PANTOPRAZOLE [Concomitant]
     Active Substance: PANTOPRAZOLE
  15. GABAPENTIN [Concomitant]
     Active Substance: GABAPENTIN
  16. SYNTHROID [Concomitant]
     Active Substance: LEVOTHYROXINE SODIUM
  17. ALENDRONATE [Concomitant]
     Active Substance: ALENDRONATE SODIUM
  18. Wild Alaskan Salmon Oil [Concomitant]
  19. FISH OIL [Concomitant]
     Active Substance: FISH OIL
  20. Magnesium bisglycinate [Concomitant]
     Dosage: 200 MILLIGRAM, QD

REACTIONS (5)
  - Vaginal infection [Recovered/Resolved]
  - Blood pressure decreased [Recovered/Resolved]
  - Abdominal pain [Unknown]
  - Dizziness [Recovered/Resolved]
  - Blood iron decreased [Unknown]

NARRATIVE: CASE EVENT DATE: 20250323
